FAERS Safety Report 10572233 (Version 2)
Quarter: 2014Q4

REPORT INFORMATION
  Report Type: Spontaneous
  Country: US (occurrence: CA)
  Receive Date: 20141108
  Receipt Date: 20141108
  Transmission Date: 20150529
  Serious: Yes (Death, Hospitalization)
  Sender: FDA-Public Use
  Company Number: CA-CELGENE-028-21880-12111396

PATIENT
  Age: 60 Year
  Sex: Male
  Weight: 120.2 kg

DRUGS (51)
  1. REVLIMID [Suspect]
     Active Substance: LENALIDOMIDE
     Indication: PLASMA CELL MYELOMA
     Dosage: 25 MILLIGRAM
     Route: 048
     Dates: start: 20120831, end: 20121105
  2. DEXAMETHASONE. [Suspect]
     Active Substance: DEXAMETHASONE
     Indication: PLASMA CELL MYELOMA
  3. CYCLOBENZAPRINE HCL [Concomitant]
     Active Substance: CYCLOBENZAPRINE HYDROCHLORIDE
  4. PREDNISONE. [Concomitant]
     Active Substance: PREDNISONE
  5. PIPERACILLIN AND TAZOBACTAM [Concomitant]
     Active Substance: PIPERACILLIN SODIUM\TAZOBACTAM SODIUM
  6. NORMAL SALINE [Concomitant]
     Active Substance: SODIUM CHLORIDE
  7. NYSTATIN. [Concomitant]
     Active Substance: NYSTATIN
  8. DELATESTRYL [Concomitant]
     Active Substance: TESTOSTERONE ENANTHATE
  9. PROCHLORPERAZINE. [Concomitant]
     Active Substance: PROCHLORPERAZINE
  10. FENTANYL. [Concomitant]
     Active Substance: FENTANYL
  11. TYLENOL [Concomitant]
     Active Substance: ACETAMINOPHEN
  12. LORAZEPAM. [Concomitant]
     Active Substance: LORAZEPAM
  13. FRAGMIN [Concomitant]
     Active Substance: DALTEPARIN SODIUM
  14. PHOSPHATE EFFERVESCENT [Concomitant]
  15. LYRICA [Concomitant]
     Active Substance: PREGABALIN
  16. PANTOPRAZOLE [Concomitant]
     Active Substance: PANTOPRAZOLE SODIUM
  17. TRAZODONE [Concomitant]
     Active Substance: TRAZODONE HYDROCHLORIDE
  18. CODEINE SYRUP [Concomitant]
  19. CIPROFLOXACIN. [Concomitant]
     Active Substance: CIPROFLOXACIN
     Route: 065
     Dates: start: 20130101, end: 20130109
  20. RED BLOOD CELLS [Concomitant]
     Active Substance: HUMAN RED BLOOD CELL
  21. OMEPRAZOLE. [Concomitant]
     Active Substance: OMEPRAZOLE
  22. DILAUDID [Concomitant]
     Active Substance: HYDROMORPHONE HYDROCHLORIDE
  23. MORPHINE [Concomitant]
     Active Substance: MORPHINE
  24. DULCOLAX [Concomitant]
     Active Substance: BISACODYL OR DOCUSATE SODIUM
  25. GASTROGRAFIN [Concomitant]
     Active Substance: DIATRIZOATE MEGLUMINE\DIATRIZOATE SODIUM
  26. PEGYLATED INTERFERON ALPHA NOS [Concomitant]
     Active Substance: PEGINTERFERON ALFA-2A OR PEGINTERFERON ALFA-2B
  27. CEFTRIAXONE. [Concomitant]
     Active Substance: CEFTRIAXONE
  28. BISOPROLOL FURAMATE [Concomitant]
  29. PEGLYTE [Concomitant]
  30. ZOMETA [Concomitant]
     Active Substance: ZOLEDRONIC ACID
  31. KCL [Concomitant]
     Active Substance: POTASSIUM CHLORIDE
  32. DEXTROSE. [Concomitant]
     Active Substance: DEXTROSE
  33. GOLYTELY [Concomitant]
     Active Substance: POLYETHYLENE GLYCOL 3350\POTASSIUM CHLORIDE\SODIUM BICARBONATE\SODIUM CHLORIDE\SODIUM SULFATE ANHYDROUS
  34. AMOXCLAV [Concomitant]
     Route: 065
     Dates: start: 20130103, end: 20130109
  35. BENADRYL [Concomitant]
     Active Substance: DIPHENHYDRAMINE HYDROCHLORIDE
  36. ATACAND [Concomitant]
     Active Substance: CANDESARTAN CILEXETIL
  37. VELCADE [Concomitant]
     Active Substance: BORTEZOMIB
  38. FLOVENT [Concomitant]
     Active Substance: FLUTICASONE PROPIONATE
  39. LASIX [Concomitant]
     Active Substance: FUROSEMIDE
  40. ASA [Concomitant]
     Active Substance: ASPIRIN
  41. K-DUR [Concomitant]
     Active Substance: POTASSIUM CHLORIDE
  42. MAGNESIUM [Concomitant]
     Active Substance: MAGNESIUM
  43. HYDROMORPHONE CONTIN [Concomitant]
  44. VENTOLIN [Concomitant]
     Active Substance: ALBUTEROL SULFATE
  45. FLEET NOS [Concomitant]
     Active Substance: BISACODYL OR GLYCERIN OR MINERAL OIL OR SODIUM PHOSPHATE, DIBASIC\SODIUM PHOSPHATE, MONOBASIC
  46. CYCLOPHOSPHAMIDE. [Concomitant]
     Active Substance: CYCLOPHOSPHAMIDE
  47. OXYGEN. [Concomitant]
     Active Substance: OXYGEN
  48. AMLODIPINE [Concomitant]
     Active Substance: AMLODIPINE BESYLATE
  49. VANCOMYCIN [Concomitant]
     Active Substance: VANCOMYCIN
  50. FLEXERIL [Concomitant]
     Active Substance: CYCLOBENZAPRINE HYDROCHLORIDE
  51. SULCRATE [Concomitant]
     Active Substance: SUCRALFATE

REACTIONS (3)
  - Spinal cord compression [Not Recovered/Not Resolved]
  - Streptococcal bacteraemia [Recovered/Resolved]
  - Adenocarcinoma of colon [Fatal]

NARRATIVE: CASE EVENT DATE: 20121105
